FAERS Safety Report 8824313 (Version 5)
Quarter: 2013Q1

REPORT INFORMATION
  Report Type: Report from Study
  Country: US (occurrence: US)
  Receive Date: 20121004
  Receipt Date: 20130212
  Transmission Date: 20140127
  Serious: Yes (Hospitalization, Other)
  Sender: FDA-Public Use
  Company Number: US-ASTELLAS-2012US008227

PATIENT
  Age: 53 Year
  Sex: Male

DRUGS (8)
  1. ERLOTINIB TABLET [Suspect]
     Indication: HEPATIC CANCER
     Dosage: 150 MG, UID/QD
     Route: 048
     Dates: start: 20120922
  2. ERLOTINIB TABLET [Suspect]
     Dosage: 150 MG, UID/QD
     Route: 048
     Dates: start: 20121115
  3. BEVACIZUMAB [Suspect]
     Indication: HEPATIC CANCER
     Dosage: 10 MG/KG, Q2W
     Route: 042
     Dates: start: 20120920
  4. BEVACIZUMAB [Suspect]
     Dosage: 10 MG/KG, Q2W
     Route: 042
     Dates: start: 20121115
  5. DIOVAN [Concomitant]
     Indication: PRODUCT USED FOR UNKNOWN INDICATION
     Dosage: UNK
     Route: 065
  6. NEXIUM                             /01479302/ [Concomitant]
     Indication: PRODUCT USED FOR UNKNOWN INDICATION
     Dosage: UNK
     Route: 065
  7. ZOLPIDEM                           /00914902/ [Concomitant]
     Indication: PRODUCT USED FOR UNKNOWN INDICATION
     Dosage: UNK
     Route: 065
  8. MAGNESIUM OXIDE [Concomitant]
     Indication: PRODUCT USED FOR UNKNOWN INDICATION
     Dosage: UNK
     Route: 065

REACTIONS (7)
  - Off label use [Unknown]
  - Thrombosis [Unknown]
  - Osteonecrosis [Unknown]
  - Hip fracture [Unknown]
  - Musculoskeletal pain [Unknown]
  - Escherichia urinary tract infection [Unknown]
  - Escherichia test positive [Unknown]
